FAERS Safety Report 5968877-6 (Version None)
Quarter: 2008Q4

REPORT INFORMATION
  Report Type: 
  Country: None (occurrence: None)
  Receive Date: 20081126
  Receipt Date: 20081120
  Transmission Date: 20090506
  Serious: Yes (Hospitalization, Other)
  Sender: FDA-Public Use
  Company Number: CA-ABBOTT-08P-028-0489072-00

PATIENT
  Sex: Female

DRUGS (3)
  1. HUMIRA [Suspect]
     Indication: CROHN'S DISEASE
     Route: 058
     Dates: start: 20070801, end: 20080901
  2. HUMIRA [Suspect]
     Route: 058
     Dates: start: 20081119
  3. PREDNISONE TAB [Concomitant]
     Dosage: WEANING
     Route: 048

REACTIONS (6)
  - BONE PAIN [None]
  - CONDITION AGGRAVATED [None]
  - CROHN'S DISEASE [None]
  - NAUSEA [None]
  - PYREXIA [None]
  - SPINAL FRACTURE [None]
